FAERS Safety Report 7430712-7 (Version None)
Quarter: 2011Q2

REPORT INFORMATION
  Report Type: 
  Country: None (occurrence: None)
  Receive Date: 20110421
  Receipt Date: 20110420
  Transmission Date: 20111010
  Serious: Yes (Death, Other)
  Sender: FDA-Public Use
  Company Number: NL-B.I. PHARMACEUTICALS,INC./RIDGEFIELD-2011-NL-00169NL

PATIENT

DRUGS (1)
  1. SIFROL [Suspect]
     Indication: PARKINSON'S DISEASE

REACTIONS (1)
  - NEOPLASM MALIGNANT [None]
